FAERS Safety Report 18695124 (Version 3)
Quarter: 2021Q1

REPORT INFORMATION
  Report Type: Spontaneous
  Country: CH (occurrence: CH)
  Receive Date: 20210104
  Receipt Date: 20210111
  Transmission Date: 20210419
  Serious: Yes (Hospitalization)
  Sender: FDA-Public Use
  Company Number: CH-PFIZER INC-2020518126

PATIENT
  Age: 29 Year
  Sex: Female
  Weight: 91.3 kg

DRUGS (13)
  1. METFORMIN HCL [Suspect]
     Active Substance: METFORMIN HYDROCHLORIDE
     Indication: DIABETES MELLITUS
     Dosage: UNK
     Route: 065
  2. IBEROGAST [Suspect]
     Active Substance: HERBALS
     Indication: FATIGUE
     Dosage: UNK
  3. IBEROGAST [Suspect]
     Active Substance: HERBALS
     Indication: DYSPEPSIA
  4. PANTOPRAZOLE [Suspect]
     Active Substance: PANTOPRAZOLE
     Indication: FATIGUE
     Dosage: UNK
     Route: 065
  5. LEVONORGESTREL + ETINILESTRADIOL [Concomitant]
     Active Substance: ETHINYL ESTRADIOL\LEVONORGESTREL
     Indication: CONTRACEPTION
     Dosage: UNK
  6. LEVOTHYROXINE. [Concomitant]
     Active Substance: LEVOTHYROXINE
     Indication: HYPOTHYROIDISM
     Dosage: UNK
  7. PANTOPRAZOLE [Suspect]
     Active Substance: PANTOPRAZOLE
     Indication: ERUCTATION
  8. PANTOPRAZOLE [Suspect]
     Active Substance: PANTOPRAZOLE
     Indication: NAUSEA
  9. IBEROGAST [Suspect]
     Active Substance: HERBALS
     Indication: DECREASED APPETITE
  10. PANTOPRAZOLE [Suspect]
     Active Substance: PANTOPRAZOLE
     Indication: DYSPEPSIA
  11. IBEROGAST [Suspect]
     Active Substance: HERBALS
     Indication: NAUSEA
  12. IBEROGAST [Suspect]
     Active Substance: HERBALS
     Indication: ERUCTATION
  13. PANTOPRAZOLE [Suspect]
     Active Substance: PANTOPRAZOLE
     Indication: DECREASED APPETITE

REACTIONS (3)
  - Chromaturia [Recovered/Resolved]
  - Scleral discolouration [Recovered/Resolved]
  - Drug ineffective [Recovered/Resolved]
